FAERS Safety Report 15310103 (Version 4)
Quarter: 2018Q4

REPORT INFORMATION
  Report Type: Spontaneous
  Country: US (occurrence: US)
  Receive Date: 20180823
  Receipt Date: 20181107
  Transmission Date: 20190204
  Serious: No
  Sender: FDA-Public Use
  Company Number: US-PFIZER INC-2018336244

PATIENT
  Age: 71 Year
  Sex: Female
  Weight: 57 kg

DRUGS (7)
  1. IBRANCE [Suspect]
     Active Substance: PALBOCICLIB
     Indication: BREAST CANCER METASTATIC
     Dosage: 125 MG, CYCLIC (ONCE IN THE MORNING, THREE WEEKS ON AND ONE WEEK OFF)
     Route: 048
     Dates: start: 20180820
  2. IBRANCE [Suspect]
     Active Substance: PALBOCICLIB
     Indication: HYPERLIPIDAEMIA
  3. ATORVASTATIN [Concomitant]
     Active Substance: ATORVASTATIN
     Dosage: 20 MG, UNK
  4. CALCIUM CARBONATE/COLECALCIFEROL [Concomitant]
     Dosage: UNK
  5. FISH OIL [Concomitant]
     Active Substance: FISH OIL
     Dosage: 1200 MG, UNK
  6. HYDROCODONE BITARTRATE AND ACETAMINOPHEN [Concomitant]
     Active Substance: ACETAMINOPHEN\HYDROCODONE BITARTRATE
     Indication: MUSCLE SPASMS
     Dosage: UNK UNK, AS NEEDED ((HYDROCODONE: 5 MG; ACETAMINOPHEN: 325 MG)
  7. LETROZOLE. [Concomitant]
     Active Substance: LETROZOLE
     Dosage: 2.5 MG, UNK

REACTIONS (7)
  - Dyspnoea exertional [Not Recovered/Not Resolved]
  - Oral pain [Not Recovered/Not Resolved]
  - Nausea [Recovering/Resolving]
  - Hot flush [Not Recovered/Not Resolved]
  - Fatigue [Not Recovered/Not Resolved]
  - Pain [Unknown]
  - Alopecia [Unknown]

NARRATIVE: CASE EVENT DATE: 2018
